FAERS Safety Report 5693643-9 (Version None)
Quarter: 2008Q2

REPORT INFORMATION
  Report Type: 
  Country: None (occurrence: None)
  Receive Date: 20080328
  Receipt Date: 20070801
  Transmission Date: 20081010
  Serious: Yes (Other)
  Sender: FDA-Public Use
  Company Number: HQWYE457008AUG07

PATIENT
  Sex: Male

DRUGS (6)
  1. PROTONIX [Suspect]
     Indication: NAUSEA
     Dosage: 40 MG 1X PER 1 DAY, TRANSPLACENTAL
     Route: 064
     Dates: start: 20070712, end: 20070716
  2. PROTONIX [Suspect]
     Indication: VOMITING
     Dosage: 40 MG 1X PER 1 DAY, TRANSPLACENTAL
     Route: 064
     Dates: start: 20070712, end: 20070716
  3. TYLENOL W/ CODEINE NO. 3 [Concomitant]
  4. ALDOMET [Concomitant]
  5. GLUCOPHAGE [Concomitant]
  6. INSULIN (INSULIN) [Concomitant]

REACTIONS (1)
  - PREMATURE BABY [None]
